FAERS Safety Report 7687964-8 (Version None)
Quarter: 2011Q3

REPORT INFORMATION
  Report Type: 
  Country: None (occurrence: None)
  Receive Date: 20110816
  Receipt Date: 20110816
  Transmission Date: 20111222
  Serious: Yes (Other)
  Sender: FDA-Public Use
  Company Number: None

PATIENT
  Sex: Male
  Weight: 102.3 kg

DRUGS (1)
  1. SIMVASTATIN [Suspect]
     Indication: DYSLIPIDAEMIA
     Dosage: SIMVASTATIN 10MG ONCE DAILY ORALLY APPROXIMATELY 6-9 MONTHS
     Route: 048

REACTIONS (1)
  - TRIGGER FINGER [None]
